FAERS Safety Report 15810999 (Version 5)
Quarter: 2020Q1

REPORT INFORMATION
  Report Type: Spontaneous
  Country: CA (occurrence: CA)
  Receive Date: 20190111
  Receipt Date: 20200208
  Transmission Date: 20200409
  Serious: Yes (Hospitalization, Other)
  Sender: FDA-Public Use
  Company Number: CA-ROCHE-2243272

PATIENT
  Age: 16 Year
  Sex: Female

DRUGS (13)
  1. TRIQUILAR [Concomitant]
     Active Substance: DROSPIRENONE\ETHINYL ESTRADIOL
     Indication: ORAL CONTRACEPTION
     Dosage: 1 DF, QD
     Route: 048
     Dates: start: 2016
  2. XOLAIR [Suspect]
     Active Substance: OMALIZUMAB
     Indication: ASTHMA
     Route: 058
     Dates: start: 20180614
  3. XOLAIR [Suspect]
     Active Substance: OMALIZUMAB
     Route: 058
     Dates: start: 20190910
  4. XOLAIR [Suspect]
     Active Substance: OMALIZUMAB
     Route: 058
     Dates: start: 20200108
  5. CITALOPRAM [Concomitant]
     Active Substance: CITALOPRAM HYDROBROMIDE
     Indication: MOOD ALTERED
     Dosage: 1 DF, QD
     Route: 048
     Dates: start: 2017
  6. BREO ELLIPTA [Concomitant]
     Active Substance: FLUTICASONE FUROATE\VILANTEROL TRIFENATATE
     Indication: ASTHMA
     Dosage: 1 DF, QD
     Route: 055
     Dates: start: 20180227
  7. VENTOLIN [Concomitant]
     Active Substance: ALBUTEROL SULFATE
     Indication: ASTHMA
     Dosage: 2 DF, PRN
     Route: 055
     Dates: start: 2008
  8. RIBOFLAVIN [Concomitant]
     Active Substance: RIBOFLAVIN
     Indication: MIGRAINE
     Dosage: 1 DF, QD
     Route: 048
     Dates: start: 2016
  9. FLOVENT [Concomitant]
     Active Substance: FLUTICASONE PROPIONATE
     Indication: ASTHMA
     Dosage: 1 DF, PRN
     Route: 055
     Dates: start: 2008
  10. XOLAIR [Suspect]
     Active Substance: OMALIZUMAB
     Route: 058
     Dates: start: 20191010
  11. XOLAIR [Suspect]
     Active Substance: OMALIZUMAB
     Route: 058
     Dates: start: 20180712
  12. XOLAIR [Suspect]
     Active Substance: OMALIZUMAB
     Route: 058
     Dates: start: 20181206
  13. XOLAIR [Suspect]
     Active Substance: OMALIZUMAB
     Route: 058
     Dates: start: 20190129

REACTIONS (28)
  - Cellulitis [Unknown]
  - Lymphangitis [Unknown]
  - Nausea [Unknown]
  - Injection site warmth [Not Recovered/Not Resolved]
  - Confusional state [Unknown]
  - Headache [Unknown]
  - Dyspnoea [Recovering/Resolving]
  - Cough [Unknown]
  - Fatigue [Unknown]
  - Injection site bruising [Unknown]
  - Neck pain [Unknown]
  - Pain in extremity [Unknown]
  - Bronchitis [Unknown]
  - Oral herpes [Unknown]
  - Gastric disorder [Recovering/Resolving]
  - Altered state of consciousness [Unknown]
  - Dizziness [Unknown]
  - Tremor [Unknown]
  - Decreased appetite [Unknown]
  - Amnesia [Unknown]
  - Speech disorder [Unknown]
  - Vomiting [Unknown]
  - Liver disorder [Recovering/Resolving]
  - Abdominal pain upper [Unknown]
  - Influenza [Unknown]
  - Weight decreased [Unknown]
  - Injection site discolouration [Unknown]
  - Heart rate increased [Unknown]

NARRATIVE: CASE EVENT DATE: 20180615
